FAERS Safety Report 5710404-2 (Version None)
Quarter: 2008Q2

REPORT INFORMATION
  Report Type: 
  Country: None (occurrence: None)
  Receive Date: 20080418
  Receipt Date: 20080410
  Transmission Date: 20081010
  Serious: Yes (Life-Threatening, Hospitalization)
  Sender: FDA-Public Use
  Company Number: FR-MERCK-0804FRA00065

PATIENT
  Age: 63 Year
  Sex: Male

DRUGS (15)
  1. ZOCOR [Suspect]
     Indication: DYSLIPIDAEMIA
     Route: 048
     Dates: start: 20060406, end: 20060424
  2. FUROSEMIDE [Suspect]
     Route: 048
     Dates: start: 20060409, end: 20060413
  3. FUROSEMIDE [Suspect]
     Route: 042
     Dates: start: 20060414, end: 20060425
  4. HYDRODIURIL [Suspect]
     Route: 048
     Dates: start: 20060419, end: 20060425
  5. CARBIMAZOLE [Suspect]
     Route: 048
     Dates: start: 20060409, end: 20060424
  6. ALFUZOSIN HYDROCHLORIDE [Suspect]
     Indication: PROSTATIC ADENOMA
     Route: 048
     Dates: start: 20060406, end: 20060424
  7. RAMIPRIL [Suspect]
     Route: 048
     Dates: start: 20060413, end: 20060425
  8. POTASSIUM CHLORIDE [Suspect]
     Route: 048
     Dates: start: 20060422, end: 20060425
  9. IPRATROPIUM BROMIDE [Suspect]
     Dates: end: 20060425
  10. OFLOXACIN [Suspect]
     Route: 048
     Dates: start: 20060413, end: 20060424
  11. SPIRONOLACTONE [Suspect]
     Route: 048
     Dates: start: 20060414, end: 20060425
  12. VERAPAMIL HYDROCHLORIDE [Suspect]
     Route: 048
     Dates: start: 20060416, end: 20060425
  13. FINASTERIDE [Suspect]
     Indication: PROSTATIC ADENOMA
     Route: 048
     Dates: start: 20060418, end: 20060424
  14. TERBUTALINE SULFATE [Suspect]
     Dates: start: 20060419, end: 20060425
  15. FERROUS SULFATE [Suspect]
     Route: 048
     Dates: start: 20060422, end: 20060425

REACTIONS (3)
  - ENCEPHALOPATHY [None]
  - HYPERCAPNIA [None]
  - METABOLIC ALKALOSIS [None]
